FAERS Safety Report 25691362 (Version 1)
Quarter: 2025Q3

REPORT INFORMATION
  Report Type: Spontaneous
  Country: US (occurrence: None)
  Receive Date: 20250818
  Receipt Date: 20250818
  Transmission Date: 20251020
  Serious: Yes (Death)
  Sender: FDA-CTU
  Company Number: None

PATIENT
  Age: 88 Year
  Sex: Female

DRUGS (2)
  1. APIXABAN [Suspect]
     Active Substance: APIXABAN
  2. DABIGATRAN [Concomitant]
     Active Substance: DABIGATRAN

REACTIONS (8)
  - Haematemesis [None]
  - Respiratory distress [None]
  - Pneumonitis aspiration [None]
  - General physical health deterioration [None]
  - Acute kidney injury [None]
  - Anaemia [None]
  - Haemorrhoids [None]
  - Cardiac failure acute [None]

NARRATIVE: CASE EVENT DATE: 20240301
